FAERS Safety Report 12505663 (Version 1)
Quarter: 2016Q2

REPORT INFORMATION
  Report Type: Spontaneous
  Country: US (occurrence: US)
  Receive Date: 20160628
  Receipt Date: 20160628
  Transmission Date: 20160815
  Serious: Yes (Hospitalization, Other)
  Sender: FDA-Public Use
  Company Number: US-BAYER-2016-122519

PATIENT
  Age: 77 Year
  Sex: Female
  Weight: 55.78 kg

DRUGS (1)
  1. BAYER LOW DOSE [Suspect]
     Active Substance: ASPIRIN
     Indication: ISCHAEMIC HEART DISEASE PROPHYLAXIS
     Dosage: 1 DF, QD
     Route: 048
     Dates: end: 201602

REACTIONS (6)
  - Abnormal faeces [None]
  - Haemorrhage [None]
  - Haemorrhagic anaemia [None]
  - Faeces discoloured [None]
  - Gastrointestinal ulcer haemorrhage [None]
  - Product use issue [None]

NARRATIVE: CASE EVENT DATE: 20160204
